FAERS Safety Report 5872209-1 (Version None)
Quarter: 2008Q3

REPORT INFORMATION
  Report Type: 
  Country: None (occurrence: None)
  Receive Date: 20080902
  Receipt Date: 20080820
  Transmission Date: 20090109
  Serious: Yes (Hospitalization)
  Sender: FDA-Public Use
  Company Number: 2008-182350-NL

PATIENT
  Age: 48 Year
  Sex: Female

DRUGS (5)
  1. DEXAMETHASONE [Suspect]
     Indication: CHEMOTHERAPY
     Dosage: 20 MG ONCE,INTRAVENOUS (NOS)
     Route: 042
     Dates: start: 20080703, end: 20080703
  2. DEXAMETHASONE [Suspect]
     Indication: CHEMOTHERAPY
     Dosage: 20 MG ONCE,INTRAVENOUS (NOS)
     Route: 042
     Dates: start: 20080710, end: 20080710
  3. DEXAMETHASONE [Suspect]
     Indication: CHEMOTHERAPY
     Dosage: 20 MG ONCE,INTRAVENOUS (NOS)
     Route: 042
     Dates: start: 20080820, end: 20080820
  4. CISPLATIN [Concomitant]
  5. TROPISETRON [Concomitant]

REACTIONS (4)
  - EYELID OEDEMA [None]
  - GENERALISED ERYTHEMA [None]
  - PARAESTHESIA [None]
  - PHARYNGEAL OEDEMA [None]
